FAERS Safety Report 6332673-0 (Version None)
Quarter: 2009Q3

REPORT INFORMATION
  Report Type: 
  Country: None (occurrence: None)
  Receive Date: 20090828
  Receipt Date: 20090824
  Transmission Date: 20100115
  Serious: Yes (Death, Life-Threatening, Hospitalization)
  Sender: FDA-Public Use
  Company Number: GB-JNJFOC-20090503145

PATIENT
  Age: 58 Year
  Sex: Female
  Weight: 49 kg

DRUGS (14)
  1. REMICADE [Suspect]
     Indication: RHEUMATOID ARTHRITIS
     Route: 042
  2. METHOTREXATE [Concomitant]
  3. ARCOXIA [Concomitant]
  4. ASPIRIN [Concomitant]
  5. COVERSYL [Concomitant]
  6. DIAZEPAM [Concomitant]
  7. FLUOXETINE [Concomitant]
  8. FOLIC ACID [Concomitant]
  9. NEXIUM [Concomitant]
  10. SIMVASTATIN [Concomitant]
  11. LEVOTHYROXINE [Concomitant]
  12. OXYCONTIN [Concomitant]
  13. PLAVIX [Concomitant]
  14. DELTACORTRIL [Concomitant]

REACTIONS (4)
  - CEREBRAL INFARCTION [None]
  - ENDOCARDITIS BACTERIAL [None]
  - SEPSIS [None]
  - URINARY TRACT INFECTION [None]
